FAERS Safety Report 25559989 (Version 1)
Quarter: 2025Q3

REPORT INFORMATION
  Report Type: Spontaneous
  Country: US (occurrence: US)
  Receive Date: 20250715
  Receipt Date: 20250715
  Transmission Date: 20251021
  Serious: No
  Sender: NOVO NORDISK
  Company Number: US-NOVOPROD-1385821

PATIENT
  Sex: Male

DRUGS (1)
  1. OZEMPIC [Suspect]
     Active Substance: SEMAGLUTIDE
     Indication: Diabetes mellitus management
     Dosage: ONCE WEEKLY ON SUNDAY.
     Route: 058
     Dates: start: 20250126

REACTIONS (2)
  - Weight decreased [Not Recovered/Not Resolved]
  - Drug dose titration not performed [Not Recovered/Not Resolved]
